FAERS Safety Report 17583828 (Version 1)
Quarter: 2020Q1

REPORT INFORMATION
  Report Type: Report from Study
  Country: US (occurrence: US)
  Receive Date: 20200326
  Receipt Date: 20200326
  Transmission Date: 20200409
  Serious: Yes (Other)
  Sender: FDA-Public Use
  Company Number: US-BIOGEN-2020BI00853094

PATIENT
  Sex: Female

DRUGS (1)
  1. TYSABRI [Suspect]
     Active Substance: NATALIZUMAB
     Indication: MULTIPLE SCLEROSIS
     Route: 065
     Dates: start: 20130524

REACTIONS (5)
  - Skin cancer [Unknown]
  - Decreased immune responsiveness [Unknown]
  - Joint injury [Unknown]
  - Anxiety [Unknown]
  - Urinary tract infection [Unknown]
